FAERS Safety Report 8514781-9 (Version None)
Quarter: 2012Q3

REPORT INFORMATION
  Report Type: 
  Country: None (occurrence: None)
  Receive Date: 20120717
  Receipt Date: 20110808
  Transmission Date: 20120928
  Serious: No
  Sender: FDA-Public Use
  Company Number: US-TYCO HEALTHCARE/MALLINCKRODT-T201101165

PATIENT
  Sex: Male
  Weight: 65.306 kg

DRUGS (10)
  1. GABAPENTIN [Concomitant]
     Dosage: UNK
  2. VITAMIN D [Concomitant]
     Dosage: UNK
  3. CELEBREX [Concomitant]
     Dosage: UNK
     Dates: end: 20110522
  4. MORPHINE [Suspect]
     Dosage: 30 MG, 1 TABLET QD
     Route: 048
     Dates: start: 20110525, end: 20110528
  5. ASPIRIN [Concomitant]
     Dosage: 81 MG, UNK
  6. MORPHINE [Suspect]
     Dosage: 30 MG, 1 TABLET QD
     Route: 048
     Dates: start: 20110523, end: 20110523
  7. MS CONTIN [Concomitant]
     Dosage: 1 DOSE
     Dates: start: 20110524, end: 20110524
  8. MORPHINE [Suspect]
     Indication: PAIN IN EXTREMITY
     Dosage: 30 MG, 1 TABLET QD
     Route: 048
     Dates: start: 20110520, end: 20110520
  9. MS CONTIN [Concomitant]
     Dosage: 1 DOSE
     Dates: start: 20110521, end: 20110521
  10. MIRALAX [Concomitant]
     Indication: CONSTIPATION
     Dosage: UNK

REACTIONS (9)
  - ERUCTATION [None]
  - NAUSEA [None]
  - INFLUENZA LIKE ILLNESS [None]
  - PRODUCT QUALITY ISSUE [None]
  - PRODUCT SUBSTITUTION ISSUE [None]
  - FEELING ABNORMAL [None]
  - ABDOMINAL DISCOMFORT [None]
  - GASTROINTESTINAL SOUNDS ABNORMAL [None]
  - MALAISE [None]
